FAERS Safety Report 16304632 (Version 1)
Quarter: 2019Q2

REPORT INFORMATION
  Report Type: Spontaneous
  Country: GB (occurrence: GB)
  Receive Date: 20190513
  Receipt Date: 20190513
  Transmission Date: 20190711
  Serious: Yes (Disabling, Other)
  Sender: FDA-Public Use
  Company Number: GB-IPSEN BIOPHARMACEUTICALS, INC.-2019-07552

PATIENT
  Age: 59 Year
  Sex: Female
  Weight: 53.06 kg

DRUGS (3)
  1. EVOREL [Concomitant]
     Indication: HORMONE REPLACEMENT THERAPY
  2. PROGESTERONE. [Concomitant]
     Active Substance: PROGESTERONE
     Indication: HORMONE REPLACEMENT THERAPY
     Dosage: 245 (DOSE FORM)
  3. AZZALURE [Suspect]
     Active Substance: BOTULINUM TOXIN TYPE A
     Indication: SKIN COSMETIC PROCEDURE
     Dosage: 120 (UNITS NOT REPORTED)
     Route: 051
     Dates: start: 201802, end: 201802

REACTIONS (2)
  - Fatigue [Recovered/Resolved]
  - Tinnitus [Recovered/Resolved]

NARRATIVE: CASE EVENT DATE: 201802
